FAERS Safety Report 9640689 (Version 1)
Quarter: 2013Q4

REPORT INFORMATION
  Report Type: Spontaneous
  Country: US (occurrence: US)
  Receive Date: 20131023
  Receipt Date: 20131023
  Transmission Date: 20140711
  Serious: Yes (Other)
  Sender: FDA-Public Use
  Company Number: US-TEVA-440015USA

PATIENT
  Age: 21 Year
  Sex: Female
  Weight: 56.3 kg

DRUGS (1)
  1. PLAN B ONE-STEP [Suspect]
     Indication: POST COITAL CONTRACEPTION
     Dosage: 1.5 MILLIGRAM DAILY;
     Route: 048
     Dates: start: 20131021, end: 20131021

REACTIONS (2)
  - Exposure during pregnancy [Unknown]
  - Pregnancy [Unknown]
